FAERS Safety Report 12954415 (Version 2)
Quarter: 2022Q2

REPORT INFORMATION
  Report Type: Spontaneous
  Country: US (occurrence: US)
  Receive Date: 20161118
  Receipt Date: 20220425
  Transmission Date: 20220721
  Serious: No
  Sender: FDA-Public Use
  Company Number: US-PFIZER INC-2016519330

PATIENT
  Age: 66 Year
  Sex: Female
  Weight: 81.65 kg

DRUGS (10)
  1. LYRICA [Suspect]
     Active Substance: PREGABALIN
     Indication: Pruritus
     Dosage: 50 MG, 2X/DAY (1 CAPSULE BID)
     Route: 048
  2. LYRICA [Suspect]
     Active Substance: PREGABALIN
     Dosage: 100 MG, 2X/DAY (1 CAPSULE BID)
     Route: 048
  3. LYRICA [Suspect]
     Active Substance: PREGABALIN
     Dosage: 200 MG, 2X/DAY (1 CAPSULE BID)
     Route: 048
  4. LYRICA [Suspect]
     Active Substance: PREGABALIN
     Dosage: 150 MG, 2X/DAY
     Dates: start: 201609
  5. DOXEPIN [Concomitant]
     Active Substance: DOXEPIN
     Indication: Pruritus
     Dosage: 75 MG, 1X/DAY
     Route: 048
  6. ERGOCALCIFEROL [Concomitant]
     Active Substance: ERGOCALCIFEROL
     Indication: Routine health maintenance
     Dosage: 1 DF, 1X/DAY
     Route: 048
  7. LOSARTAN [Concomitant]
     Active Substance: LOSARTAN
     Dosage: UNK, DAILY
     Route: 048
  8. LOSARTAN AND HYDROCHLOROTHIAZIDE [Concomitant]
     Active Substance: HYDROCHLOROTHIAZIDE\LOSARTAN POTASSIUM
     Indication: Blood pressure abnormal
     Dosage: HYDROCHLOROTHIAZIDE: 100MG- LOSARTAN POTASSIUM: 25MG) 1 DAILY
     Route: 048
  9. XOLAIR [Concomitant]
     Active Substance: OMALIZUMAB
     Dosage: 300 MG, EVERY 4 WEEKS
     Route: 058
  10. OMEPRAZOLE [Concomitant]
     Active Substance: OMEPRAZOLE
     Indication: Gastrooesophageal reflux disease
     Dosage: 40 MG, 1X/DAY
     Route: 048

REACTIONS (3)
  - Product use in unapproved indication [Unknown]
  - Dizziness [Recovered/Resolved]
  - Therapeutic response unexpected [Unknown]

NARRATIVE: CASE EVENT DATE: 20161101
